FAERS Safety Report 5853216-1 (Version None)
Quarter: 2008Q3

REPORT INFORMATION
  Report Type: 
  Country: None (occurrence: None)
  Receive Date: 20080821
  Receipt Date: 20080820
  Transmission Date: 20090109
  Serious: Yes (Other)
  Sender: FDA-Public Use
  Company Number: PHHO2001DE04872

PATIENT
  Sex: Male
  Weight: 56 kg

DRUGS (1)
  1. ELIDEL [Suspect]
     Indication: ALOPECIA AREATA
     Dosage: 1% ASM SOLN RIGHT + VEHICLE LEFT SIDE
     Dates: start: 20001207, end: 20010605

REACTIONS (3)
  - DERMATITIS ALLERGIC [None]
  - PRURITUS [None]
  - RASH PAPULAR [None]
